FAERS Safety Report 10111459 (Version 1)
Quarter: 2014Q2

REPORT INFORMATION
  Report Type: Spontaneous
  Country: US (occurrence: US)
  Receive Date: 20140425
  Receipt Date: 20140425
  Transmission Date: 20141212
  Serious: Yes (Hospitalization, Other)
  Sender: FDA-Public Use
  Company Number: PHHY2013US156319

PATIENT
  Age: 70 Year
  Sex: Female

DRUGS (5)
  1. ENTACAPONE [Suspect]
     Indication: PARKINSON^S DISEASE
  2. PRAMIPEXOLE [Suspect]
     Dosage: 0.25 MG, TID
  3. PRAMIPEXOLE [Suspect]
     Dosage: 0.125 UNK, UNK
  4. LEVODOPA-CARBIDOPA [Suspect]
     Indication: PARKINSON^S DISEASE
  5. DULOXETINE [Concomitant]
     Dosage: 60 MG, QD

REACTIONS (5)
  - Fall [Unknown]
  - Aversion [Unknown]
  - Obsessive thoughts [Recovering/Resolving]
  - Depressed mood [Unknown]
  - Anxiety [Recovering/Resolving]
